FAERS Safety Report 6575104-8 (Version None)
Quarter: 2010Q1

REPORT INFORMATION
  Report Type: 
  Country: None (occurrence: None)
  Receive Date: 20100201
  Receipt Date: 20100120
  Transmission Date: 20100710
  Serious: Yes (Hospitalization)
  Sender: FDA-Public Use
  Company Number: SPV1-2010-00101

PATIENT
  Sex: Male

DRUGS (1)
  1. ACETASOL HC [Suspect]
     Indication: MUCOPOLYSACCHARIDOSIS II
     Dosage: IV DRIP
     Route: 041

REACTIONS (5)
  - FACE OEDEMA [None]
  - INFUSION RELATED REACTION [None]
  - NO THERAPEUTIC RESPONSE [None]
  - OEDEMA [None]
  - PYREXIA [None]
